FAERS Safety Report 9478860 (Version 1)
Quarter: 2013Q3

REPORT INFORMATION
  Report Type: Spontaneous
  Country: IT (occurrence: None)
  Receive Date: 20130822
  Receipt Date: 20130822
  Transmission Date: 20140515
  Serious: Yes (Hospitalization)
  Sender: FDA-Public Use
  Company Number: GER/ITL/13/0034061

PATIENT
  Age: 53 Year
  Sex: Female

DRUGS (5)
  1. QUETIAPINE (QUETIAPINE) [Suspect]
     Indication: PRODUCT USED FOR UNKNOWN INDICATION
     Dosage: 1 IN 1 TOTAL
     Route: 048
     Dates: start: 20130730, end: 20130730
  2. DELORAZEPAM (DELORAZEPAM) [Suspect]
     Indication: PRODUCT USED FOR UNKNOWN INDICATION
     Dosage: 1 IN 1 TOTAL
     Route: 048
     Dates: start: 20130730, end: 20130730
  3. SERTRALINE (SERTRALINE) [Suspect]
     Indication: PRODUCT USED FOR UNKNOWN INDICATION
     Dosage: 1 IN 1 TOTAL
     Route: 048
     Dates: start: 20130730, end: 20130730
  4. MIRTAZAPINE (MIRTAZAPINE) [Suspect]
     Indication: PRODUCT USED FOR UNKNOWN INDICATION
     Dosage: 1 IN 1 TOTAL
     Route: 048
     Dates: start: 20130730, end: 20130730
  5. PREGABALIN (PREGABALIN) [Suspect]
     Indication: PRODUCT USED FOR UNKNOWN INDICATION
     Dosage: 1 IN 1 TOTAL
     Route: 048
     Dates: start: 20130730, end: 20130730

REACTIONS (3)
  - Electrocardiogram QT prolonged [None]
  - Intentional self-injury [None]
  - Incorrect dose administered [None]
